FAERS Safety Report 5656885-4 (Version None)
Quarter: 2008Q1

REPORT INFORMATION
  Report Type: 
  Country: None (occurrence: None)
  Receive Date: 20080219
  Receipt Date: 20071029
  Transmission Date: 20080703
  Serious: No
  Sender: FDA-Public Use
  Company Number: WAES 0710USA06097

PATIENT
  Age: 60 Year
  Sex: Female

DRUGS (7)
  1. JANUVIA [Suspect]
     Dosage: 50 MG/DAILY/PO
     Route: 048
     Dates: start: 20071024
  2. ALDACTONE [Concomitant]
  3. COZAAR [Concomitant]
  4. TAGAMET [Concomitant]
  5. FOLIC ACID [Concomitant]
  6. LEVOTHYROXINE SODIUM [Concomitant]
  7. VERAPAMIL [Concomitant]

REACTIONS (1)
  - PALPITATIONS [None]
